FAERS Safety Report 17132339 (Version 2)
Quarter: 2019Q4

REPORT INFORMATION
  Report Type: Spontaneous
  Country: US (occurrence: US)
  Receive Date: 20191210
  Receipt Date: 20191227
  Transmission Date: 20200122
  Serious: No
  Sender: FDA-Public Use
  Company Number: US-VIFOR (INTERNATIONAL) INC.-VIT-2019-15954

PATIENT
  Sex: Female
  Weight: 133.5 kg

DRUGS (3)
  1. HEPARIN [Concomitant]
     Active Substance: HEPARIN SODIUM
  2. MIRCERA [Suspect]
     Active Substance: METHOXY POLYETHYLENE GLYCOL-EPOETIN BETA
     Indication: PRODUCT USED FOR UNKNOWN INDICATION
  3. SODIUM THIOSULFATE [Concomitant]
     Active Substance: SODIUM THIOSULFATE

REACTIONS (2)
  - Haemoglobin decreased [Unknown]
  - Drug ineffective [Unknown]
